FAERS Safety Report 5638345-X (Version None)
Quarter: 2008Q1

REPORT INFORMATION
  Report Type: 
  Country: None (occurrence: None)
  Receive Date: 20080131
  Receipt Date: 20071114
  Transmission Date: 20080703
  Serious: No
  Sender: FDA-Public Use
  Company Number: 163-21880-07110879

PATIENT
  Age: 61 Year
  Sex: Female

DRUGS (3)
  1. REVLIMID [Suspect]
     Indication: MULTIPLE MYELOMA
     Dosage: 25 MG, DAILY, ORAL ; 15 MG, DAILY, ORAL ; 5 MG, 1 IN 1 D, ORAL
     Route: 048
     Dates: start: 20060710, end: 20060801
  2. REVLIMID [Suspect]
     Indication: MULTIPLE MYELOMA
     Dosage: 25 MG, DAILY, ORAL ; 15 MG, DAILY, ORAL ; 5 MG, 1 IN 1 D, ORAL
     Route: 048
     Dates: start: 20060809, end: 20060901
  3. REVLIMID [Suspect]
     Indication: MULTIPLE MYELOMA
     Dosage: 25 MG, DAILY, ORAL ; 15 MG, DAILY, ORAL ; 5 MG, 1 IN 1 D, ORAL
     Route: 048
     Dates: start: 20071114

REACTIONS (4)
  - BLADDER DISORDER [None]
  - PAIN [None]
  - RENAL DISORDER [None]
  - SWELLING [None]
